FAERS Safety Report 13452866 (Version 1)
Quarter: 2017Q2

REPORT INFORMATION
  Report Type: Spontaneous
  Country: US (occurrence: US)
  Receive Date: 20170418
  Receipt Date: 20170418
  Transmission Date: 20170830
  Serious: Yes (Other)
  Sender: FDA-Public Use
  Company Number: US-GE HEALTHCARE LIFE SCIENCES-2017CSU000796

PATIENT
  Sex: Female

DRUGS (2)
  1. GADAVIST [Suspect]
     Active Substance: GADOBUTROL
     Indication: PRODUCT USED FOR UNKNOWN INDICATION
  2. OMNISCAN [Suspect]
     Active Substance: GADODIAMIDE
     Indication: PRODUCT USED FOR UNKNOWN INDICATION
     Route: 042

REACTIONS (8)
  - Nervous system disorder [Unknown]
  - Drug clearance decreased [Unknown]
  - Cognitive disorder [Unknown]
  - Mental impairment [Unknown]
  - Hypoaesthesia [Unknown]
  - Headache [Unknown]
  - Hemiparesis [Unknown]
  - Skin hypertrophy [Unknown]
